FAERS Safety Report 23880569 (Version 1)
Quarter: 2024Q2

REPORT INFORMATION
  Report Type: Spontaneous
  Country: GB (occurrence: GB)
  Receive Date: 20240521
  Receipt Date: 20240521
  Transmission Date: 20240716
  Serious: Yes (Disabling, Other)
  Sender: FDA-Public Use
  Company Number: GB-ZAMBON-202401339GBR

PATIENT
  Age: 79 Year
  Sex: Male
  Weight: 76 kg

DRUGS (6)
  1. SAFINAMIDE [Suspect]
     Active Substance: SAFINAMIDE
     Indication: Parkinsonism
     Dosage: NOT PROVIDED
     Dates: start: 20240410, end: 20240422
  2. SAFINAMIDE [Suspect]
     Active Substance: SAFINAMIDE
     Dosage: TAKE ONE DAILY FOR 4 WEEKS THEN INCREASE TO 100 MG
     Dates: start: 20240410
  3. SAFINAMIDE [Suspect]
     Active Substance: SAFINAMIDE
     Dosage: INCREASED TO 100 MG
     Dates: start: 202404
  4. ATORVASTATIN [Concomitant]
     Active Substance: ATORVASTATIN
     Indication: Ill-defined disorder
     Dosage: TAKE ONE DAILY
     Dates: start: 20230821
  5. BENSERAZIDE HYDROCHLORIDE\LEVODOPA [Concomitant]
     Active Substance: BENSERAZIDE HYDROCHLORIDE\LEVODOPA
     Indication: Ill-defined disorder
     Dosage: TAKE ONCE AT NIGHT AT 10PM AS PER SPECIALIST
     Dates: start: 20230821
  6. BENSERAZIDE HYDROCHLORIDE\LEVODOPA [Concomitant]
     Active Substance: BENSERAZIDE HYDROCHLORIDE\LEVODOPA
     Indication: Ill-defined disorder
     Dosage: 1 TO BE TAKEN AT 22.00 MDU
     Dates: start: 20230821, end: 20240403

REACTIONS (3)
  - Malaise [Recovered/Resolved]
  - Hallucination [Recovered/Resolved]
  - Nausea [Recovered/Resolved]

NARRATIVE: CASE EVENT DATE: 20240410
